FAERS Safety Report 7562847-2 (Version None)
Quarter: 2011Q2

REPORT INFORMATION
  Report Type: 
  Country: None (occurrence: None)
  Receive Date: 20110622
  Receipt Date: 20110614
  Transmission Date: 20111010
  Serious: No
  Sender: FDA-Public Use
  Company Number: US-JNJFOC-20110607066

PATIENT
  Age: 35 Year
  Sex: Female

DRUGS (5)
  1. INVEGA [Suspect]
     Route: 048
     Dates: start: 20110401, end: 20110501
  2. INVEGA [Suspect]
     Route: 048
     Dates: start: 20110601
  3. INVEGA [Suspect]
     Indication: PRODUCT USED FOR UNKNOWN INDICATION
     Route: 048
     Dates: start: 20110512, end: 20110601
  4. EFFEXOR [Concomitant]
     Indication: DEPRESSION
     Route: 048
  5. LUNESTA [Concomitant]
     Indication: PRODUCT USED FOR UNKNOWN INDICATION

REACTIONS (1)
  - GALACTORRHOEA [None]
